FAERS Safety Report 20205987 (Version 1)
Quarter: 2021Q4

REPORT INFORMATION
  Report Type: Spontaneous
  Country: US (occurrence: None)
  Receive Date: 20211217
  Receipt Date: 20211217
  Transmission Date: 20220303
  Serious: No
  Sender: FDA-Public Use
  Company Number: None

PATIENT
  Age: 73 Year
  Sex: Female

DRUGS (1)
  1. CASIRIVIMAB [Suspect]
     Active Substance: CASIRIVIMAB
     Indication: COVID-19 treatment
     Dosage: OTHER FREQUENCY : ONCE;?
     Route: 041

REACTIONS (3)
  - Product preparation error [None]
  - Product administration error [None]
  - Product confusion [None]

NARRATIVE: CASE EVENT DATE: 20211217
